FAERS Safety Report 24389848 (Version 2)
Quarter: 2025Q1

REPORT INFORMATION
  Report Type: Report from Study
  Country: CL (occurrence: CL)
  Receive Date: 20241003
  Receipt Date: 20250320
  Transmission Date: 20250409
  Serious: Yes (Hospitalization)
  Sender: JOHNSON AND JOHNSON
  Company Number: CL-JNJFOC-20240977395

PATIENT
  Age: 61 Year
  Sex: Female

DRUGS (1)
  1. SIMPONI [Suspect]
     Active Substance: GOLIMUMAB
     Indication: Rheumatoid arthritis
     Dosage: LAST ADHERENCE RECORDED ON 11- JUN-2023. LAST ADHERENCE ADMINISTERED ON 21-AUG-2024.
     Route: 058
     Dates: start: 20211227

REACTIONS (2)
  - Cardiac failure [Recovering/Resolving]
  - Pneumonia [Recovering/Resolving]
